FAERS Safety Report 8388781-6 (Version None)
Quarter: 2012Q2

REPORT INFORMATION
  Report Type: 
  Country: None (occurrence: None)
  Receive Date: 20120528
  Receipt Date: 20120515
  Transmission Date: 20120825
  Serious: Yes (Other)
  Sender: FDA-Public Use
  Company Number: FR-BRISTOL-MYERS SQUIBB COMPANY-16628752

PATIENT
  Age: 1 Day
  Sex: Male
  Weight: 2 kg

DRUGS (10)
  1. DOXORUBICIN HCL [Suspect]
     Route: 064
  2. CYTARABINE [Suspect]
     Route: 064
  3. VINCRISTINE [Suspect]
  4. MESNA [Suspect]
  5. METHOTREXATE [Suspect]
     Dosage: THEN 240MG/M2/HR OVER 23HRS
     Route: 064
  6. CYCLOPHOSPHAMIDE [Suspect]
     Route: 064
  7. LEUCOVORIN CALCIUM [Suspect]
     Route: 064
  8. IFOSFAMIDE [Suspect]
  9. NEUPOGEN [Suspect]
     Route: 064
  10. ETOPOSIDE [Suspect]
     Route: 064

REACTIONS (1)
  - PREMATURE BABY [None]
